FAERS Safety Report 25080345 (Version 1)
Quarter: 2025Q1

REPORT INFORMATION
  Report Type: Report from Study
  Country: US (occurrence: US)
  Receive Date: 20250315
  Receipt Date: 20250315
  Transmission Date: 20250409
  Serious: Yes (Hospitalization)
  Sender: ABBVIE
  Company Number: US-ABBVIE-6171497

PATIENT
  Age: 59 Year
  Sex: Female

DRUGS (1)
  1. SKYRIZI [Suspect]
     Active Substance: RISANKIZUMAB-RZAA
     Indication: Colitis ulcerative
     Route: 042
     Dates: start: 20241010, end: 20241205

REACTIONS (9)
  - Dehydration [Recovering/Resolving]
  - Head discomfort [Recovering/Resolving]
  - Nausea [Unknown]
  - Vomiting [Unknown]
  - Hyperhidrosis [Unknown]
  - Feeling cold [Unknown]
  - Dizziness [Unknown]
  - Colitis ulcerative [Unknown]
  - Fall [Unknown]

NARRATIVE: CASE EVENT DATE: 20250101
